FAERS Safety Report 8005382-X (Version None)
Quarter: 2011Q4

REPORT INFORMATION
  Report Type: 
  Country: None (occurrence: None)
  Receive Date: 20111223
  Receipt Date: 20111215
  Transmission Date: 20120403
  Serious: Yes (Hospitalization, Other)
  Sender: FDA-Public Use
  Company Number: US-PURDUE-USA-2011-0080105

PATIENT
  Sex: Male

DRUGS (1)
  1. OXYCONTIN [Suspect]
     Indication: PROCEDURAL PAIN
     Dosage: UNK, BID
     Route: 048
     Dates: start: 20110701, end: 20111001

REACTIONS (5)
  - DRUG DEPENDENCE [None]
  - ANXIETY [None]
  - DRUG WITHDRAWAL SYNDROME [None]
  - DEPRESSION [None]
  - BIPOLAR I DISORDER [None]
